FAERS Safety Report 6047839-7 (Version None)
Quarter: 2009Q1

REPORT INFORMATION
  Report Type: 
  Country: None (occurrence: None)
  Receive Date: 20090123
  Receipt Date: 20090113
  Transmission Date: 20090719
  Serious: Yes (Hospitalization)
  Sender: FDA-Public Use
  Company Number: FR-PFIZER INC-2009156861

PATIENT

DRUGS (8)
  1. ALDACTONE [Suspect]
     Route: 048
     Dates: start: 20050301, end: 20080801
  2. VALSARTAN [Concomitant]
     Dosage: UNK
     Dates: end: 20080501
  3. INDAPAMIDE [Concomitant]
     Dosage: UNK
     Dates: start: 20080501, end: 20080819
  4. METOPROLOL TARTRATE [Concomitant]
     Dosage: UNK MG, UNK
  5. PRAVASTATIN SODIUM [Concomitant]
     Dosage: UNK
  6. ACETYLSALICYLATE LYSINE [Concomitant]
     Dosage: UNK
  7. URAPIDIL [Concomitant]
     Dosage: 30 MG, 2X/DAY
  8. INSULIN GLARGINE [Concomitant]

REACTIONS (1)
  - DERMATOSIS [None]
